FAERS Safety Report 14805367 (Version 1)
Quarter: 2018Q2

REPORT INFORMATION
  Report Type: Spontaneous
  Country: US (occurrence: US)
  Receive Date: 20180425
  Receipt Date: 20180425
  Transmission Date: 20180711
  Serious: Yes (Other)
  Sender: FDA-Public Use
  Company Number: US-JNJFOC-20180429782

PATIENT
  Age: 61 Year
  Sex: Male

DRUGS (1)
  1. INVOKANA [Suspect]
     Active Substance: CANAGLIFLOZIN
     Indication: TYPE 2 DIABETES MELLITUS
     Route: 048
     Dates: start: 20131218, end: 20170627

REACTIONS (4)
  - Localised infection [Unknown]
  - Toe amputation [Unknown]
  - Osteomyelitis [Unknown]
  - Gangrene [Unknown]

NARRATIVE: CASE EVENT DATE: 20170112
